FAERS Safety Report 24764555 (Version 3)
Quarter: 2025Q4

REPORT INFORMATION
  Report Type: Spontaneous
  Country: AU (occurrence: AU)
  Receive Date: 20241223
  Receipt Date: 20251211
  Transmission Date: 20260119
  Serious: Yes (Hospitalization)
  Sender: CELLTRION
  Company Number: AU-PFIZER INC-PV202400163625

PATIENT

DRUGS (3)
  1. INFLIXIMAB [Suspect]
     Active Substance: INFLIXIMAB
     Indication: Colitis ulcerative
     Dosage: 10 MG/KG, WEEK 0 DOSE
  2. INFLIXIMAB [Suspect]
     Active Substance: INFLIXIMAB
     Dosage: 10 MG/KG, WEEK 2 DOSE
  3. INFLIXIMAB [Suspect]
     Active Substance: INFLIXIMAB
     Dosage: 10 MG/KG, AFTER 4-4.5 WEEKS (WEEK 6 DOSE)

REACTIONS (2)
  - Condition aggravated [Unknown]
  - Maternal exposure during pregnancy [Unknown]
